FAERS Safety Report 19087215 (Version 3)
Quarter: 2021Q3

REPORT INFORMATION
  Report Type: Spontaneous
  Country: US (occurrence: US)
  Receive Date: 20210402
  Receipt Date: 20210902
  Transmission Date: 20211014
  Serious: No
  Sender: FDA-Public Use
  Company Number: US-MYLANLABS-2021M1018275

PATIENT
  Sex: Female

DRUGS (2)
  1. IMODIMID [Concomitant]
     Dosage: UNK
  2. ALLOPURINOL. [Suspect]
     Active Substance: ALLOPURINOL
     Indication: BLOOD URIC ACID INCREASED
     Dosage: UNK

REACTIONS (9)
  - Abdominal discomfort [Unknown]
  - Skin atrophy [Unknown]
  - Rash [Unknown]
  - Abdominal distension [Unknown]
  - Constipation [Unknown]
  - Crepitations [Unknown]
  - Flatulence [Unknown]
  - Irritability [Unknown]
  - Diarrhoea [Unknown]
